FAERS Safety Report 7347974-7 (Version None)
Quarter: 2011Q1

REPORT INFORMATION
  Report Type: 
  Country: None (occurrence: None)
  Receive Date: 20110311
  Receipt Date: 20110225
  Transmission Date: 20110831
  Serious: Yes (Hospitalization)
  Sender: FDA-Public Use
  Company Number: US-BAYER-2011-022067

PATIENT
  Sex: Female
  Weight: 80.726 kg

DRUGS (8)
  1. YAZ [Suspect]
     Indication: PRODUCT USED FOR UNKNOWN INDICATION
     Dosage: UNK
     Dates: start: 20070801, end: 20100101
  2. TRIAZOLAM [Concomitant]
     Dosage: 0.25 MG, UNK
     Route: 048
  3. CITALOPRAM [Concomitant]
     Dosage: 20 MG, QD
     Route: 048
  4. UNCODEABLE ^UNCLASSIFIABLE^ [Concomitant]
     Dosage: 150 MG, UNK
     Route: 048
     Dates: start: 20050101, end: 20090101
  5. ALBUTEROL [Concomitant]
     Dosage: UNK
     Route: 055
     Dates: start: 20091201
  6. CELEBREX [Concomitant]
     Dosage: 200 MG, BID
     Route: 048
  7. LUNESTA [Concomitant]
     Dosage: 3 MG, PRN
     Route: 048
  8. CLINDESSE [Concomitant]
     Route: 067

REACTIONS (2)
  - CHOLECYSTITIS CHRONIC [None]
  - ABDOMINAL PAIN UPPER [None]
